FAERS Safety Report 23680575 (Version 1)
Quarter: 2024Q1

REPORT INFORMATION
  Report Type: Spontaneous
  Country: FR (occurrence: FR)
  Receive Date: 20240328
  Receipt Date: 20240328
  Transmission Date: 20240410
  Serious: Yes (Other)
  Sender: FDA-Public Use
  Company Number: FR-AFSSAPS-AVNY2023000556

PATIENT
  Age: 30 Year
  Sex: Female
  Weight: 64 kg

DRUGS (2)
  1. DIAZEPAM [Suspect]
     Active Substance: DIAZEPAM
     Indication: Product used for unknown indication
     Dosage: UNK
     Route: 065
  2. CANNABIS SATIVA SUBSP. INDICA TOP [Suspect]
     Active Substance: CANNABIS SATIVA SUBSP. INDICA TOP
     Indication: Product used for unknown indication
     Dosage: 7/8 JOINTS PER DAY

REACTIONS (2)
  - Substance use disorder [Recovering/Resolving]
  - Drug use disorder [Recovering/Resolving]

NARRATIVE: CASE EVENT DATE: 20160101
